FAERS Safety Report 5936484-7 (Version None)
Quarter: 2008Q4

REPORT INFORMATION
  Report Type: 
  Country: None (occurrence: None)
  Receive Date: 20081030
  Receipt Date: 20080623
  Transmission Date: 20090506
  Serious: No
  Sender: FDA-Public Use
  Company Number: US-BAYER-200827083NA

PATIENT
  Age: 36 Year
  Sex: Female

DRUGS (1)
  1. MAGNEVIST [Suspect]
     Indication: NUCLEAR MAGNETIC RESONANCE IMAGING
     Dosage: TOTAL DAILY DOSE: 20 ML
     Route: 042
     Dates: start: 20080528, end: 20080528

REACTIONS (5)
  - DEAFNESS [None]
  - DIZZINESS [None]
  - HEART RATE INCREASED [None]
  - URTICARIA [None]
  - VISUAL IMPAIRMENT [None]
